FAERS Safety Report 21776266 (Version 1)
Quarter: 2022Q4

REPORT INFORMATION
  Report Type: Spontaneous
  Country: US (occurrence: US)
  Receive Date: 20221226
  Receipt Date: 20221226
  Transmission Date: 20230113
  Serious: No
  Sender: FDA-Public Use
  Company Number: US-MIGRATION_PFIZER-2022BHV002581

PATIENT
  Age: 28 Year
  Sex: Female
  Weight: 49.032 kg

DRUGS (1)
  1. NURTEC ODT [Suspect]
     Active Substance: RIMEGEPANT SULFATE
     Indication: Migraine
     Dosage: 1 AS NEEDED FOR MIGRAINES
     Route: 065
     Dates: start: 20220908

REACTIONS (4)
  - Product use complaint [Recovered/Resolved]
  - Incorrect route of product administration [Unknown]
  - Product label issue [Unknown]
  - Product use issue [Unknown]

NARRATIVE: CASE EVENT DATE: 20220908
